FAERS Safety Report 20630669 (Version 1)
Quarter: 2022Q1

REPORT INFORMATION
  Report Type: Spontaneous
  Country: KR (occurrence: KR)
  Receive Date: 20220324
  Receipt Date: 20220324
  Transmission Date: 20220423
  Serious: Yes (Other)
  Sender: FDA-Public Use
  Company Number: KR-009507513-2203KOR007510

PATIENT
  Sex: Female
  Weight: 74 kg

DRUGS (1)
  1. PREVYMIS [Suspect]
     Active Substance: LETERMOVIR
     Indication: Antiviral prophylaxis
     Dosage: (STRENGTH: 240 MG), 240 MG; QD
     Route: 048
     Dates: start: 20210316, end: 20210621

REACTIONS (2)
  - Cytomegalovirus gastroenteritis [Unknown]
  - Drug ineffective [Unknown]

NARRATIVE: CASE EVENT DATE: 20210715
